FAERS Safety Report 13563040 (Version 1)
Quarter: 2017Q2

REPORT INFORMATION
  Report Type: Spontaneous
  Country: BR (occurrence: BR)
  Receive Date: 20170519
  Receipt Date: 20170519
  Transmission Date: 20170830
  Serious: Yes (Other)
  Sender: FDA-Public Use
  Company Number: PHHY2017BR071391

PATIENT
  Sex: Male

DRUGS (3)
  1. TOFRANIL PAMOATO [Suspect]
     Active Substance: IMIPRAMINE PAMOATE
     Indication: ATTENTION DEFICIT/HYPERACTIVITY DISORDER
     Dosage: UNK
     Route: 065
     Dates: start: 20170114
  2. RITALIN LA [Suspect]
     Active Substance: METHYLPHENIDATE HYDROCHLORIDE
     Indication: ATTENTION DEFICIT/HYPERACTIVITY DISORDER
     Dosage: 1 DF, Q12H
     Route: 065
     Dates: start: 20170110
  3. RITALIN LA [Suspect]
     Active Substance: METHYLPHENIDATE HYDROCHLORIDE
     Dosage: 2 DF, UNK
     Route: 065

REACTIONS (6)
  - Agitation [Unknown]
  - Thinking abnormal [Unknown]
  - Product use in unapproved indication [Unknown]
  - Deafness [Unknown]
  - Disturbance in attention [Unknown]
  - Wrong technique in product usage process [Unknown]
